FAERS Safety Report 5228669-2 (Version None)
Quarter: 2007Q1

REPORT INFORMATION
  Report Type: 
  Country: None (occurrence: None)
  Receive Date: 20070205
  Receipt Date: 20070125
  Transmission Date: 20070707
  Serious: Yes (Hospitalization)
  Sender: FDA-Public Use
  Company Number: FR-GLAXOSMITHKLINE-B0426839B

PATIENT
  Sex: Male

DRUGS (5)
  1. PAROXETINE HCL [Suspect]
     Dosage: 20MG TWICE PER DAY
     Dates: start: 20060112, end: 20060522
  2. ZYPREXA [Concomitant]
     Indication: ILL-DEFINED DISORDER
     Dosage: 10MG PER DAY
     Dates: start: 20060112, end: 20060531
  3. SERESTA [Concomitant]
     Dosage: 150MG PER DAY
     Dates: start: 20060414, end: 20060531
  4. IXEL [Concomitant]
     Indication: DEPRESSION
     Dosage: 100MG PER DAY
     Dates: start: 20060522, end: 20060531
  5. ZOLPIDEM TARTRATE [Concomitant]
     Indication: INSOMNIA
     Dosage: 1UNIT PER DAY
     Dates: start: 20060112, end: 20060531

REACTIONS (4)
  - DRUG EXPOSURE DURING PREGNANCY [None]
  - FOETAL GROWTH RETARDATION [None]
  - PREMATURE BABY [None]
  - RESPIRATORY TRACT INFECTION [None]
